FAERS Safety Report 6997330-6 (Version None)
Quarter: 2010Q3

REPORT INFORMATION
  Report Type: 
  Country: None (occurrence: None)
  Receive Date: 20100918
  Receipt Date: 20091006
  Transmission Date: 20110219
  Serious: No
  Sender: FDA-Public Use
  Company Number: US-WYE-H11472709

PATIENT
  Sex: Female
  Weight: 77.18 kg

DRUGS (4)
  1. PRISTIQ [Suspect]
     Indication: DEPRESSION
     Route: 048
     Dates: start: 20090820
  2. DIAZEPAM [Concomitant]
  3. TYLENOL W/ CODEINE NO. 3 [Concomitant]
  4. LORAZEPAM [Concomitant]

REACTIONS (5)
  - ANXIETY [None]
  - CONSTIPATION [None]
  - HYPERTENSION [None]
  - INSOMNIA [None]
  - VOMITING [None]
